FAERS Safety Report 5132380-6 (Version None)
Quarter: 2006Q4

REPORT INFORMATION
  Report Type: 
  Country: None (occurrence: None)
  Receive Date: 20061023
  Receipt Date: 20061009
  Transmission Date: 20070319
  Serious: Yes (Hospitalization)
  Sender: FDA-Public Use
  Company Number: US-AMGEN-STX196239

PATIENT
  Sex: Female

DRUGS (11)
  1. KINERET [Suspect]
     Indication: RHEUMATOID ARTHRITIS
     Route: 058
     Dates: start: 20020601
  2. METHOTREXATE SODIUM [Suspect]
     Indication: RHEUMATOID ARTHRITIS
     Route: 048
     Dates: start: 19880101, end: 20060701
  3. METHOTREXATE SODIUM [Suspect]
     Route: 048
     Dates: start: 20061009
  4. SYNTHROID [Concomitant]
  5. FOLIC ACID [Concomitant]
     Dates: start: 19880101, end: 20060801
  6. FOLIC ACID [Concomitant]
     Dates: start: 20061009
  7. POTASSIUM [Concomitant]
  8. PROMETHAZINE [Concomitant]
  9. AMBIEN [Concomitant]
  10. MORPHINE [Concomitant]
  11. ACETAMINOPHEN [Concomitant]

REACTIONS (6)
  - ESCHERICHIA INFECTION [None]
  - HYDRONEPHROSIS [None]
  - PANCYTOPENIA [None]
  - RENAL IMPAIRMENT [None]
  - STAPHYLOCOCCAL INFECTION [None]
  - UROSEPSIS [None]
